FAERS Safety Report 5672103-5 (Version None)
Quarter: 2008Q1

REPORT INFORMATION
  Report Type: 
  Country: None (occurrence: None)
  Receive Date: 20080319
  Receipt Date: 20080310
  Transmission Date: 20080703
  Serious: Yes (Other)
  Sender: FDA-Public Use
  Company Number: US-ELI_LILLY_AND_COMPANY-US200803001969

PATIENT
  Age: 62 Year
  Sex: Female

DRUGS (2)
  1. GEMZAR [Suspect]
     Indication: OVARIAN CANCER RECURRENT
     Dosage: 800 MG/M2
  2. CARBOPLATIN [Concomitant]
     Indication: OVARIAN CANCER RECURRENT

REACTIONS (3)
  - AREFLEXIA [None]
  - DYSARTHRIA [None]
  - DYSPHAGIA [None]
